FAERS Safety Report 6415942-5 (Version None)
Quarter: 2009Q4

REPORT INFORMATION
  Report Type: 
  Country: None (occurrence: None)
  Receive Date: 20091027
  Receipt Date: 20091026
  Transmission Date: 20100525
  Serious: Yes (Other)
  Sender: FDA-Public Use
  Company Number: B0470434A

PATIENT
  Age: 43 Year
  Sex: Male
  Weight: 85 kg

DRUGS (4)
  1. AVANDAMET [Suspect]
     Route: 048
     Dates: start: 20061106, end: 20070101
  2. AVANDIA [Suspect]
     Dosage: 4MG PER DAY
     Route: 048
     Dates: start: 20070101
  3. NOVONORM [Suspect]
     Route: 065
     Dates: end: 20070101
  4. GLIBENESE [Concomitant]
     Dates: start: 20070101

REACTIONS (4)
  - HOT FLUSH [None]
  - OEDEMA PERIPHERAL [None]
  - TREMOR [None]
  - WEIGHT INCREASED [None]
